FAERS Safety Report 10425069 (Version 2)
Quarter: 2014Q4

REPORT INFORMATION
  Report Type: Spontaneous
  Country: US (occurrence: US)
  Receive Date: 20140902
  Receipt Date: 20141215
  Transmission Date: 20150528
  Serious: Yes (Hospitalization, Other)
  Sender: FDA-Public Use
  Company Number: US-GLAXOSMITHKLINE-A1086902A

PATIENT
  Age: 82 Year
  Sex: Male
  Weight: 58.5 kg

DRUGS (1)
  1. VOTRIENT [Suspect]
     Active Substance: PAZOPANIB HYDROCHLORIDE
     Indication: RENAL CANCER
     Dosage: 800 MG, 1D
     Route: 048
     Dates: start: 20131205

REACTIONS (11)
  - Renal impairment [Recovering/Resolving]
  - Cholecystitis acute [Unknown]
  - Weight decreased [Unknown]
  - Radiation proctitis [Unknown]
  - Abdominal pain [Unknown]
  - Gynaecomastia [Unknown]
  - Oedema peripheral [Unknown]
  - Polyp [Unknown]
  - Blood potassium increased [Recovering/Resolving]
  - Blood creatinine increased [Recovering/Resolving]
  - Breast mass [Unknown]

NARRATIVE: CASE EVENT DATE: 201410
